FAERS Safety Report 6096945-X (Version None)
Quarter: 2009Q1

REPORT INFORMATION
  Report Type: 
  Country: None (occurrence: None)
  Receive Date: 20090219
  Receipt Date: 20081105
  Transmission Date: 20090719
  Serious: No
  Sender: FDA-Public Use
  Company Number: WAES 0811USA00888

PATIENT
  Age: 63 Year
  Sex: Female
  Weight: 92.9874 kg

DRUGS (1)
  1. JANUVIA [Suspect]
     Indication: HYPERGLYCAEMIA
     Dosage: 100 MG/DAILY/PO
     Route: 048

REACTIONS (1)
  - HEADACHE [None]
